FAERS Safety Report 10072583 (Version 1)
Quarter: 2014Q2

REPORT INFORMATION
  Report Type: Spontaneous
  Country: JP (occurrence: JP)
  Receive Date: 20140411
  Receipt Date: 20140411
  Transmission Date: 20141212
  Serious: Yes (Other)
  Sender: FDA-Public Use
  Company Number: PHHY2014JP039216

PATIENT
  Sex: 0

DRUGS (1)
  1. NEORAL [Suspect]
     Indication: SKIN DISORDER
     Dosage: UNK UKN, UNK
     Route: 048

REACTIONS (1)
  - Spinal column stenosis [Unknown]
